FAERS Safety Report 10814075 (Version 1)
Quarter: 2015Q1

REPORT INFORMATION
  Report Type: Report from Study
  Country: US (occurrence: US)
  Receive Date: 20150218
  Receipt Date: 20150218
  Transmission Date: 20150721
  Serious: No
  Sender: FDA-Public Use
  Company Number: US-ABBVIE-14K-163-1281290-00

PATIENT
  Age: 51 Year
  Sex: Male

DRUGS (14)
  1. CALCIUM PLUS VITAMIN D [Concomitant]
     Active Substance: CALCIUM\VITAMIN D
     Indication: PRODUCT USED FOR UNKNOWN INDICATION
  2. HUMIRA [Suspect]
     Active Substance: ADALIMUMAB
     Dates: start: 20140731, end: 20140731
  3. ENTOCORT EC [Concomitant]
     Active Substance: BUDESONIDE
     Indication: CROHN^S DISEASE
  4. CIPRO [Concomitant]
     Active Substance: CIPROFLOXACIN HYDROCHLORIDE
     Indication: CROHN^S DISEASE
  5. KAPIDEX [Concomitant]
     Active Substance: DEXLANSOPRAZOLE
     Indication: PRODUCT USED FOR UNKNOWN INDICATION
  6. HUMIRA [Suspect]
     Active Substance: ADALIMUMAB
     Indication: CROHN^S DISEASE
     Dates: start: 20140717, end: 20140717
  7. HUMIRA [Suspect]
     Active Substance: ADALIMUMAB
     Dates: start: 20140814
  8. AZATHIOPRINE. [Concomitant]
     Active Substance: AZATHIOPRINE
     Indication: CROHN^S DISEASE
  9. VIVELLE [Concomitant]
     Active Substance: ESTRADIOL
     Indication: HOT FLUSH
     Dosage: CHANGED BI-WEEKLY
  10. URSO FORTE [Concomitant]
     Active Substance: URSODIOL
     Indication: BLOOD ALKALINE PHOSPHATASE INCREASED
  11. PROTON PUMP INHIBITORS [Concomitant]
     Active Substance: UNSPECIFIED INGREDIENT
     Indication: PRODUCT USED FOR UNKNOWN INDICATION
  12. NORVASC [Concomitant]
     Active Substance: AMLODIPINE BESYLATE
     Indication: HYPERTENSION
  13. MULTIVITAMIN [Concomitant]
     Active Substance: VITAMINS
     Indication: PRODUCT USED FOR UNKNOWN INDICATION
  14. IMODIUM [Concomitant]
     Active Substance: LOPERAMIDE HYDROCHLORIDE
     Indication: DIARRHOEA
     Dosage: TWO TO FOUR MILLIGRAM

REACTIONS (3)
  - Injection site rash [Not Recovered/Not Resolved]
  - Injection site erythema [Recovered/Resolved]
  - Injection site bruising [Recovered/Resolved]

NARRATIVE: CASE EVENT DATE: 20140829
